FAERS Safety Report 4577975-3 (Version None)
Quarter: 2005Q1

REPORT INFORMATION
  Report Type: 
  Country: None (occurrence: None)
  Receive Date: 20050211
  Receipt Date: 20050131
  Transmission Date: 20050727
  Serious: Yes (Other)
  Sender: FDA-Public Use
  Company Number: US-JNJFOC-20050200673

PATIENT
  Sex: Female
  Weight: 54.43 kg

DRUGS (6)
  1. REMICADE [Suspect]
     Indication: RHEUMATOID ARTHRITIS
     Route: 042
  2. PERCOCET [Concomitant]
  3. PERCOCET [Concomitant]
     Indication: PAIN
  4. PREDNISONE [Concomitant]
  5. ACTONEL [Concomitant]
  6. LIPITOR [Concomitant]

REACTIONS (4)
  - BODY TEMPERATURE INCREASED [None]
  - HEPATOMEGALY [None]
  - INFUSION RELATED REACTION [None]
  - PAIN [None]
